FAERS Safety Report 6071338-X (Version None)
Quarter: 2009Q1

REPORT INFORMATION
  Report Type: 
  Country: None (occurrence: None)
  Receive Date: 20090205
  Receipt Date: 20090123
  Transmission Date: 20090719
  Serious: Yes (Hospitalization)
  Sender: FDA-Public Use
  Company Number: 230864K09USA

PATIENT
  Age: 58 Year
  Sex: Female
  Weight: 61 kg

DRUGS (5)
  1. REBIF [Suspect]
     Indication: MULTIPLE SCLEROSIS
     Dosage: 44 MCG, 3 IN 1 WEEKS, SUBCUTANEOUS
     Route: 058
     Dates: start: 20070124, end: 20081207
  2. NORVASC [Concomitant]
  3. NEURONTIN [Concomitant]
  4. KLONOPIN [Concomitant]
  5. IBUPROFEN TABLETS [Concomitant]

REACTIONS (5)
  - CHEST PAIN [None]
  - CONVULSION [None]
  - INFLUENZA [None]
  - LOSS OF CONSCIOUSNESS [None]
  - RESPIRATORY ARREST [None]
